FAERS Safety Report 4989121-2 (Version None)
Quarter: 2006Q2

REPORT INFORMATION
  Report Type: 
  Country: None (occurrence: None)
  Receive Date: 20060425
  Receipt Date: 20040713
  Transmission Date: 20061013
  Serious: Yes (Other)
  Sender: FDA-Public Use
  Company Number: 8006809

PATIENT
  Age: 24 Month
  Sex: Female

DRUGS (1)
  1. KEPPRA [Suspect]
     Dosage: 1125 MG ONCE PO
     Route: 048
     Dates: start: 20040713, end: 20040713

REACTIONS (2)
  - ACCIDENTAL DRUG INTAKE BY CHILD [None]
  - NO ADVERSE DRUG EFFECT [None]
